FAERS Safety Report 5302886-5 (Version None)
Quarter: 2007Q2

REPORT INFORMATION
  Report Type: 
  Country: None (occurrence: None)
  Receive Date: 20070420
  Receipt Date: 20070416
  Transmission Date: 20071010
  Serious: Yes (Other)
  Sender: FDA-Public Use
  Company Number: CH-JNJFOC-20070402469

PATIENT
  Age: 64 Year
  Sex: Female

DRUGS (3)
  1. REMICADE [Suspect]
     Indication: RHEUMATOID ARTHRITIS
     Dosage: GIVEN EVERY 7-8 WEEKS. THE 33RD INFUSION WAS GIVEN ON 6-DEC-06.
     Route: 042
  2. FOLIC ACID [Concomitant]
     Route: 048
  3. MTX [Concomitant]
     Route: 058

REACTIONS (1)
  - BASAL CELL CARCINOMA [None]
